FAERS Safety Report 5814182-8 (Version None)
Quarter: 2008Q3

REPORT INFORMATION
  Report Type: 
  Country: None (occurrence: None)
  Receive Date: 20080715
  Receipt Date: 20080707
  Transmission Date: 20090109
  Serious: Yes (Other)
  Sender: FDA-Public Use
  Company Number: 2008SP013779

PATIENT
  Age: 48 Year
  Sex: Male

DRUGS (2)
  1. PEG-INTRON [Suspect]
     Indication: HEPATITIS C
     Dosage: SC
     Route: 058
     Dates: start: 20080411
  2. RIBAVIRIN [Suspect]
     Indication: HEPATITIS C
     Dosage: PO
     Route: 048
     Dates: start: 20080411

REACTIONS (6)
  - CONSTIPATION [None]
  - DEHYDRATION [None]
  - EATING DISORDER [None]
  - FUNGAL OESOPHAGITIS [None]
  - HALLUCINATIONS, MIXED [None]
  - ORAL FUNGAL INFECTION [None]
